FAERS Safety Report 23677409 (Version 1)
Quarter: 2024Q1

REPORT INFORMATION
  Report Type: Spontaneous
  Country: CN (occurrence: CN)
  Receive Date: 20240327
  Receipt Date: 20240327
  Transmission Date: 20240410
  Serious: Yes (Other)
  Sender: FDA-Public Use
  Company Number: CN-BAT-2024BAT000102

PATIENT
  Age: 31 Year
  Sex: Female
  Weight: 50.0 kg

DRUGS (1)
  1. TOFIDENCE [Suspect]
     Active Substance: TOCILIZUMAB-BAVI
     Indication: Vasculitis
     Dosage: ONE SINGLE DOSE
     Route: 041
     Dates: start: 20240309, end: 20240309

REACTIONS (4)
  - Abdominal pain [Recovering/Resolving]
  - Abdominal discomfort [Unknown]
  - Nausea [Unknown]
  - Product use in unapproved indication [Unknown]

NARRATIVE: CASE EVENT DATE: 20240309
